FAERS Safety Report 6986650-7 (Version None)
Quarter: 2010Q3

REPORT INFORMATION
  Report Type: 
  Country: None (occurrence: None)
  Receive Date: 20100915
  Receipt Date: 20090825
  Transmission Date: 20110219
  Serious: No
  Sender: FDA-Public Use
  Company Number: US-WYE-H10181009

PATIENT
  Sex: Male
  Weight: 71.73 kg

DRUGS (1)
  1. PRISTIQ [Suspect]
     Indication: DEPRESSION
     Route: 048
     Dates: start: 20090623, end: 20090101

REACTIONS (3)
  - INSOMNIA [None]
  - NERVOUSNESS [None]
  - PALPITATIONS [None]
